FAERS Safety Report 19741958 (Version 1)
Quarter: 2021Q3

REPORT INFORMATION
  Report Type: Spontaneous
  Country: US (occurrence: US)
  Receive Date: 20210825
  Receipt Date: 20210825
  Transmission Date: 20211014
  Serious: Yes (Hospitalization, Other)
  Sender: FDA-Public Use
  Company Number: US-LUPIN PHARMACEUTICALS INC.-2021-15519

PATIENT
  Age: 52 Year
  Sex: Male

DRUGS (3)
  1. ZOLPIDEM [Suspect]
     Active Substance: ZOLPIDEM TARTRATE
     Indication: BACK PAIN
     Dosage: 2 DOSAGE FORM, 2 IMMEDIATE RELEASE TABLETS INGESTED
     Route: 048
  2. ACETAMINOPHEN. [Concomitant]
     Active Substance: ACETAMINOPHEN
     Indication: BACK PAIN
     Dosage: 2 DOSAGE FORM
     Route: 048
  3. IBUPROFEN. [Concomitant]
     Active Substance: IBUPROFEN
     Indication: BACK PAIN
     Dosage: UNK
     Route: 065

REACTIONS (5)
  - Altered state of consciousness [Recovered/Resolved]
  - Wrong product administered [Unknown]
  - Accidental overdose [Unknown]
  - Road traffic accident [Recovered/Resolved]
  - Amnesia [Recovered/Resolved]
